FAERS Safety Report 23525992 (Version 1)
Quarter: 2024Q1

REPORT INFORMATION
  Report Type: Spontaneous
  Country: US (occurrence: US)
  Receive Date: 20240215
  Receipt Date: 20240215
  Transmission Date: 20240410
  Serious: No
  Sender: FDA-Public Use
  Company Number: US-GSK-US2024AMR018466

PATIENT
  Sex: Female

DRUGS (1)
  1. FLUTICASONE PROPIONATE\SALMETEROL XINAFOATE [Suspect]
     Active Substance: FLUTICASONE PROPIONATE\SALMETEROL XINAFOATE
     Indication: Product used for unknown indication
     Dosage: 44 MCG, 10.6G/120 (DAILY, TWICE A DAY)

REACTIONS (4)
  - Taste disorder [Unknown]
  - Food aversion [Unknown]
  - Decreased appetite [Unknown]
  - Sinus congestion [Unknown]

NARRATIVE: CASE EVENT DATE: 20231101
